FAERS Safety Report 6566796-8 (Version None)
Quarter: 2010Q1

REPORT INFORMATION
  Report Type: 
  Country: None (occurrence: None)
  Receive Date: 20100202
  Receipt Date: 20100127
  Transmission Date: 20100710
  Serious: Yes (Hospitalization)
  Sender: FDA-Public Use
  Company Number: JP-SP-2009-05344

PATIENT
  Age: 77 Year
  Sex: Male

DRUGS (8)
  1. IMMUCYST [Suspect]
     Indication: MALIGNANT NEOPLASM OF RENAL PELVIS
     Dosage: NOT REPORTED
     Route: 065
     Dates: start: 20091112, end: 20091120
  2. IMMUCYST [Suspect]
     Dosage: NOT REPORTED
     Route: 065
     Dates: start: 20091112, end: 20091120
  3. TELMISARTAN [Concomitant]
  4. BENZBROMARONE [Concomitant]
  5. CARBOCISTEINE [Concomitant]
  6. LANSOPRAZOLE [Concomitant]
  7. ITOPRIDE HYDROCHLORIDE [Concomitant]
  8. TAMSULOSIN HYDROCHLORIDE [Concomitant]
     Dates: start: 20060818

REACTIONS (3)
  - OFF LABEL USE [None]
  - PYELONEPHRITIS [None]
  - PYREXIA [None]
